FAERS Safety Report 21906552 (Version 1)
Quarter: 2023Q1

REPORT INFORMATION
  Report Type: Spontaneous
  Country: DK (occurrence: DK)
  Receive Date: 20230125
  Receipt Date: 20230125
  Transmission Date: 20230418
  Serious: Yes (Other)
  Sender: FDA-Public Use
  Company Number: DK-BAXTER-2023BAX010322

PATIENT
  Sex: Male
  Weight: 77 kg

DRUGS (15)
  1. MELPHALAN [Suspect]
     Active Substance: MELPHALAN
     Indication: Plasma cell myeloma
     Dosage: UNK (FIRST LINE THERAPY, FEB-2019 (HIGH-DOSE)
     Route: 065
  2. BORTEZOMIB [Suspect]
     Active Substance: BORTEZOMIB
     Indication: Plasma cell myeloma
     Dosage: UNK (FIRST LINE THERAPY, FEB-2019)
     Route: 065
  3. BORTEZOMIB [Suspect]
     Active Substance: BORTEZOMIB
     Indication: Plasma cell myeloma
     Dosage: UNK (THIRD LINE TREATMENT)
     Route: 065
     Dates: start: 20220926, end: 20221020
  4. CARFILZOMIB [Suspect]
     Active Substance: CARFILZOMIB
     Indication: Plasma cell myeloma
     Dosage: UNK (SECOND LINE TREATMENT)
     Route: 065
     Dates: start: 20200819, end: 20220512
  5. CYCLOPHOSPHAMIDE [Suspect]
     Active Substance: CYCLOPHOSPHAMIDE
     Indication: Plasma cell myeloma
     Dosage: UNK (FIRST LINE THERAPY, FEB-2019)
     Route: 065
  6. DARATUMUMAB [Suspect]
     Active Substance: DARATUMUMAB
     Indication: Plasma cell myeloma
     Dosage: UNK (THIRD LINE TREATMENT)
     Route: 065
     Dates: start: 20220926, end: 20221020
  7. DARATUMUMAB [Suspect]
     Active Substance: DARATUMUMAB
     Indication: Plasma cell myeloma
     Dosage: UNK (FOURTH LINE TREATMENT)
     Route: 065
     Dates: start: 20221020, end: 20221219
  8. DEXAMETHASONE [Suspect]
     Active Substance: DEXAMETHASONE
     Indication: Plasma cell myeloma
     Dosage: UNK (FIRST LINE THERAPY, FEB-2019)
     Route: 065
  9. DEXAMETHASONE [Suspect]
     Active Substance: DEXAMETHASONE
     Indication: Plasma cell myeloma
     Dosage: UNK (SECOND LINE TREATMENT)
     Route: 065
     Dates: start: 20200819, end: 20220512
  10. DEXAMETHASONE [Suspect]
     Active Substance: DEXAMETHASONE
     Dosage: UNK (THIRD LINE TREATMENT)
     Route: 065
     Dates: start: 20220926, end: 20221020
  11. DEXAMETHASONE [Suspect]
     Active Substance: DEXAMETHASONE
     Dosage: UNK (FOURTH LINE TREATMENT)
     Route: 065
     Dates: start: 20221020, end: 20221219
  12. LENALIDOMIDE [Suspect]
     Active Substance: LENALIDOMIDE
     Indication: Plasma cell myeloma
     Dosage: UNK (FIRST LINE THERAPY, FEB-2019)
     Route: 065
  13. LENALIDOMIDE [Suspect]
     Active Substance: LENALIDOMIDE
     Dosage: UNK (SECOND LINE TREATMENT)
     Route: 065
     Dates: start: 20200819, end: 20220512
  14. POMALIDOMIDE [Suspect]
     Active Substance: POMALIDOMIDE
     Indication: Plasma cell myeloma
     Dosage: UNK (FOURTH LINE TREATMENT)
     Route: 065
     Dates: start: 20221020, end: 20221219
  15. ACYCLOVIR [Concomitant]
     Active Substance: ACYCLOVIR
     Indication: Product used for unknown indication
     Dosage: UNK
     Route: 065

REACTIONS (4)
  - Plasma cell myeloma [Unknown]
  - Monoclonal immunoglobulin increased [Unknown]
  - Therapy partial responder [Unknown]
  - Rash [Unknown]

NARRATIVE: CASE EVENT DATE: 20200514
